FAERS Safety Report 7451530-X (Version None)
Quarter: 2011Q2

REPORT INFORMATION
  Report Type: 
  Country: None (occurrence: None)
  Receive Date: 20110502
  Receipt Date: 20110426
  Transmission Date: 20111010
  Serious: Yes (Hospitalization, Other)
  Sender: FDA-Public Use
  Company Number: PHHY2010MX47927

PATIENT
  Age: 51 Year
  Sex: Female

DRUGS (13)
  1. ACLASTA [Suspect]
     Indication: OSTEOPOROSIS
     Dosage: 5 MG
     Route: 042
     Dates: start: 20080301
  2. OMEPRAZOL [Concomitant]
     Dosage: 2 DF, PER DAY
     Route: 048
  3. LYRICA [Concomitant]
     Dosage: 1 DF, PER DAY
     Route: 048
  4. LOSARTAN POTASSIUM [Concomitant]
     Dosage: 1 DF, PER DAY
     Route: 048
  5. CELECOXIB [Concomitant]
     Dosage: 1 DF, PER DAY
     Route: 048
  6. PANCREATIC ENZYMES [Concomitant]
     Dosage: 3 DF, PER DAY
     Route: 048
  7. ARAVA [Concomitant]
  8. HUMIRA [Concomitant]
     Route: 062
  9. ACLASTA [Suspect]
     Dosage: 5 MG
     Route: 042
     Dates: start: 20100501
  10. MICARDIS [Concomitant]
  11. ACLASTA [Suspect]
     Dosage: 5 MG
     Route: 042
     Dates: start: 20090510
  12. UNAMOL [Concomitant]
     Dosage: 3 DF, PER DAY
     Route: 048
  13. NEXIUM [Concomitant]

REACTIONS (7)
  - HYPOTENSION [None]
  - ASTHENIA [None]
  - URINARY TRACT INFECTION [None]
  - SOMNOLENCE [None]
  - RESPIRATORY TRACT INFECTION [None]
  - HAEMOGLOBIN DECREASED [None]
  - FATIGUE [None]
